FAERS Safety Report 5090382-2 (Version None)
Quarter: 2006Q3

REPORT INFORMATION
  Report Type: 
  Country: None (occurrence: None)
  Receive Date: 20060828
  Receipt Date: 20060612
  Transmission Date: 20061208
  Serious: Yes (Disabling)
  Sender: FDA-Public Use
  Company Number: DE-BRISTOL-MYERS SQUIBB COMPANY-13411749

PATIENT
  Age: 40 Year
  Sex: Female

DRUGS (2)
  1. COAPROVEL TABS 150MG/12.5MG [Suspect]
     Indication: HYPERTENSION
     Dosage: 150 MG/12.5 MG 1 TABLET ONCE DAILY
     Route: 048
     Dates: start: 20030709
  2. L-THYROXINE [Concomitant]
     Indication: AUTOIMMUNE THYROIDITIS
     Route: 048
     Dates: start: 19990101

REACTIONS (3)
  - ALOPECIA [None]
  - ARTHRALGIA [None]
  - RASH [None]
